FAERS Safety Report 8157511 (Version 3)
Quarter: 2013Q1

REPORT INFORMATION
  Report Type: Spontaneous
  Country: US (occurrence: US)
  Receive Date: 20110927
  Receipt Date: 20130215
  Transmission Date: 20140127
  Serious: Yes (Other)
  Sender: FDA-Public Use
  Company Number: US-ASTRAZENECA-2011SE12538

PATIENT
  Age: 604 Month
  Sex: Male

DRUGS (12)
  1. SEROQUEL [Suspect]
     Indication: INSOMNIA
     Route: 048
     Dates: start: 200312
  2. SEROQUEL [Suspect]
     Indication: INSOMNIA
     Route: 048
     Dates: start: 20090213
  3. SEROQUEL [Suspect]
     Indication: INSOMNIA
     Route: 048
     Dates: start: 200906
  4. ACETAZOLAMIDE [Concomitant]
     Route: 048
     Dates: start: 20090213
  5. DIPHENHYDRAMINE [Concomitant]
     Indication: INSOMNIA
     Route: 048
     Dates: start: 20090213
  6. LORAZEPAM [Concomitant]
     Dosage: TAKE 2 TABS EVERY MORNING AND 1 TAB EVERY AFTERNOON
     Route: 048
     Dates: start: 20090213
  7. LORAZEPAM [Concomitant]
     Route: 048
     Dates: start: 200906
  8. SIMVASTATIN [Concomitant]
     Route: 048
     Dates: start: 20090213
  9. ZOLPIDEM [Concomitant]
     Route: 048
     Dates: start: 20090213
  10. COGENTIN [Concomitant]
     Route: 048
     Dates: start: 200906
  11. CETIRIZINE [Concomitant]
     Route: 048
     Dates: start: 200906
  12. HALOPERIDOL [Concomitant]
     Dosage: TAKE 1 TABLET BY MOUTH EVERY EVENING
     Route: 048
     Dates: start: 200906

REACTIONS (3)
  - Pancreatitis [Unknown]
  - Diabetic coma [Unknown]
  - Type 2 diabetes mellitus [Unknown]
